FAERS Safety Report 9058003 (Version 6)
Quarter: 2014Q2

REPORT INFORMATION
  Report Type: Report from Study
  Country: US (occurrence: US)
  Receive Date: 20130211
  Receipt Date: 20140516
  Transmission Date: 20141212
  Serious: Yes (Hospitalization)
  Sender: FDA-Public Use
  Company Number: US-BIOGENIDEC-2013BI011685

PATIENT
  Age: 55 Year
  Sex: Male

DRUGS (5)
  1. TYSABRI [Suspect]
     Indication: MULTIPLE SCLEROSIS
     Route: 042
     Dates: start: 20100312, end: 20131219
  2. AMPYRA [Concomitant]
     Indication: GAIT DISTURBANCE
     Route: 048
     Dates: start: 20120221, end: 201312
  3. PROVIGIL [Concomitant]
  4. NEURONTIN [Concomitant]
  5. FLEXERIL [Concomitant]

REACTIONS (6)
  - Cerebrovascular accident [Recovered/Resolved]
  - Gallbladder necrosis [Recovered/Resolved with Sequelae]
  - Large intestine perforation [Recovered/Resolved]
  - Peritonitis [Recovered/Resolved]
  - Colon cancer [Recovered/Resolved]
  - Gait disturbance [Not Recovered/Not Resolved]
